FAERS Safety Report 7556262-5 (Version None)
Quarter: 2011Q2

REPORT INFORMATION
  Report Type: 
  Country: None (occurrence: None)
  Receive Date: 20110620
  Receipt Date: 20110614
  Transmission Date: 20111010
  Serious: Yes (Other)
  Sender: FDA-Public Use
  Company Number: US-PFIZER INC-US-WYE-H08499009

PATIENT
  Sex: Female
  Weight: 77 kg

DRUGS (5)
  1. PREMARIN [Suspect]
     Indication: HORMONE REPLACEMENT THERAPY
     Dosage: 0.625 MG, UNK
     Route: 048
     Dates: start: 19960404, end: 20050329
  2. WELLBUTRIN XL [Concomitant]
     Indication: DEPRESSION
     Dosage: UNK,
     Dates: start: 20040913, end: 20070801
  3. TRAZODONE [Concomitant]
     Indication: DEPRESSION
     Dosage: UNK,
     Dates: start: 19991215
  4. PREMPRO [Suspect]
     Indication: HORMONE REPLACEMENT THERAPY
     Dosage: 0.625/2.5MG
     Route: 048
     Dates: start: 19960411, end: 20020718
  5. ESTRATEST H.S. [Suspect]
     Indication: HORMONE REPLACEMENT THERAPY
     Dosage: 0.625/1.25MG
     Dates: start: 20050329, end: 20070215

REACTIONS (1)
  - BREAST CANCER FEMALE [None]
